FAERS Safety Report 8172236 (Version 5)
Quarter: 2012Q4

REPORT INFORMATION
  Report Type: Report from Study
  Country: US (occurrence: US)
  Receive Date: 20111007
  Receipt Date: 20121003
  Transmission Date: 20130627
  Serious: Yes (Death, Life-Threatening, Hospitalization)
  Sender: FDA-Public Use
  Company Number: US-SANOFI-AVENTIS-2011SA065372

PATIENT
  Age: 65 Year
  Sex: Female
  Weight: 59.36 kg

DRUGS (25)
  1. DOCETAXEL [Suspect]
     Indication: METASTATIC BREAST CANCER
     Route: 042
     Dates: start: 20110609
  2. DOCETAXEL [Suspect]
     Indication: METASTATIC BREAST CANCER
     Route: 042
     Dates: start: 20110901
  3. TRASTUZUMAB [Suspect]
     Indication: METASTATIC BREAST CANCER
     Route: 042
     Dates: start: 20110609
  4. TRASTUZUMAB [Suspect]
     Indication: METASTATIC BREAST CANCER
     Route: 042
     Dates: start: 20110901
  5. METOPROLOL SUCCINATE [Concomitant]
     Indication: HYPERTENSION
     Dates: start: 2010
  6. HYDROCHLOROTHIAZIDE [Concomitant]
     Indication: HYPERTENSION
     Dates: start: 2010
  7. PROZAC [Concomitant]
     Indication: DEPRESSION
     Dates: start: 1974
  8. ZOLOFT [Concomitant]
     Indication: DEPRESSION
     Dates: start: 2009
  9. VITAMIN B12 [Concomitant]
     Indication: VASCULAR INSUFFICIENCY
     Dates: start: 2009
  10. CENTRUM SILVER [Concomitant]
     Dates: start: 2009
  11. COMPAZINE [Concomitant]
     Indication: NAUSEA
     Dates: start: 20110610
  12. TRAZODONE [Concomitant]
     Indication: INSOMNIA
     Dates: start: 20110617
  13. ULTRAM [Concomitant]
     Indication: CHEST PAIN
     Dates: start: 20110617
  14. K-DUR [Concomitant]
     Indication: HYPOKALAEMIA
     Dates: start: 20110614
  15. OCUFLOX [Concomitant]
     Indication: CONJUNCTIVITIS
     Dates: start: 20110727
  16. GATIFLOXACIN [Concomitant]
     Indication: CONJUNCTIVITIS
     Dates: start: 20110727
  17. AMINOBENZOIC ACID [Concomitant]
     Indication: INSOMNIA
     Dates: start: 20110722
  18. ZOSYN [Concomitant]
     Indication: INFECTION
     Dates: start: 20110913, end: 20110924
  19. LEVAQUIN [Concomitant]
     Indication: INFECTION
     Dates: start: 20110913, end: 20110924
  20. PREDNISOLONE ACETATE [Concomitant]
     Indication: CORNEAL ABRASION
     Dates: start: 20110802
  21. SOLU-MEDROL [Concomitant]
     Indication: PROPHYLACTIC CHEMOTHERAPY
     Dates: start: 20110609
  22. DIPHENHYDRAMINE HYDROCHLORIDE [Concomitant]
     Indication: PROPHYLACTIC CHEMOTHERAPY
     Dates: start: 20110609
  23. ZANTAC [Concomitant]
     Indication: PROPHYLACTIC CHEMOTHERAPY
     Dates: start: 20110609
  24. ZOFRAN [Concomitant]
     Indication: PROPHYLACTIC CHEMOTHERAPY
     Dates: start: 20110609
  25. NEULASTA [Concomitant]
     Indication: CHEMOTHERAPY
     Dates: start: 20110701, end: 20110902

REACTIONS (1)
  - Interstitial lung disease [Fatal]
